FAERS Safety Report 21342116 (Version 1)
Quarter: 2022Q3

REPORT INFORMATION
  Report Type: Spontaneous
  Country: US (occurrence: None)
  Receive Date: 20220915
  Receipt Date: 20220915
  Transmission Date: 20221026
  Serious: Yes (Hospitalization)
  Sender: FDA-Public Use
  Company Number: None

PATIENT
  Age: 59 Year
  Sex: Male
  Weight: 60.75 kg

DRUGS (3)
  1. ISONIAZID [Suspect]
     Active Substance: ISONIAZID
     Indication: Latent tuberculosis
     Dosage: FREQUENCY : AT BEDTIME;?
     Route: 048
     Dates: start: 20220715, end: 20220909
  2. RIFAPENTINE [Suspect]
     Active Substance: RIFAPENTINE
  3. ATORVASTATIN [Concomitant]
     Active Substance: ATORVASTATIN

REACTIONS (2)
  - Shock [None]
  - Blood pressure decreased [None]

NARRATIVE: CASE EVENT DATE: 20220909
